FAERS Safety Report 17299341 (Version 1)
Quarter: 2020Q1

REPORT INFORMATION
  Report Type: Spontaneous
  Country: US (occurrence: US)
  Receive Date: 20200122
  Receipt Date: 20200122
  Transmission Date: 20200409
  Serious: No
  Sender: FDA-Public Use
  Company Number: US-ALLERGAN-1912208US

PATIENT
  Sex: Male

DRUGS (3)
  1. UNSPECIFIED MEDICATION FOR ANXIETY [Concomitant]
     Indication: ANXIETY
     Dosage: UNK
  2. RESTASIS [Suspect]
     Active Substance: CYCLOSPORINE
     Indication: DRY EYE
     Dosage: UNK UNK, BID (2-3 GTTS)
     Route: 047
     Dates: start: 201903
  3. UNSPECIFIED MEDICATION FOR BLOOD PRESSURE [Concomitant]
     Indication: BLOOD PRESSURE ABNORMAL
     Dosage: UNK

REACTIONS (7)
  - Visual impairment [Recovered/Resolved]
  - Product packaging quantity issue [Unknown]
  - Ocular discomfort [Recovered/Resolved]
  - Dry eye [Recovered/Resolved]
  - Incorrect dose administered [Unknown]
  - Liquid product physical issue [Unknown]
  - Vision blurred [Recovered/Resolved]
